FAERS Safety Report 6758839-3 (Version None)
Quarter: 2010Q2

REPORT INFORMATION
  Report Type: 
  Country: None (occurrence: None)
  Receive Date: 20100603
  Receipt Date: 20100520
  Transmission Date: 20101027
  Serious: Yes (Other)
  Sender: FDA-Public Use
  Company Number: 2010AL003122

PATIENT
  Age: 20 Year
  Sex: Female

DRUGS (2)
  1. VENLAFAXINE HCL [Suspect]
     Indication: DEPRESSION
     Dosage: 150 MG; PO
     Route: 048
     Dates: start: 20100211
  2. QUETIAPINE [Concomitant]

REACTIONS (8)
  - BALANCE DISORDER [None]
  - DIZZINESS [None]
  - EYE ROLLING [None]
  - MUSCLE SPASMS [None]
  - OCULOGYRIC CRISIS [None]
  - PALLOR [None]
  - PARTIAL SEIZURES [None]
  - SYNCOPE [None]
